FAERS Safety Report 4658112-3 (Version None)
Quarter: 2005Q2

REPORT INFORMATION
  Report Type: 
  Country: None (occurrence: None)
  Receive Date: 20050504
  Receipt Date: 20040416
  Transmission Date: 20051028
  Serious: Yes (Other)
  Sender: FDA-Public Use
  Company Number: PHEH2004US03466

PATIENT
  Age: 54 Year
  Sex: Female
  Weight: 65.8 kg

DRUGS (2)
  1. DIOVAN HCT [Suspect]
     Indication: HYPERTENSION
     Dosage: ORAL
     Route: 048
     Dates: end: 20020101
  2. METHOTREXATE [Concomitant]

REACTIONS (1)
  - PANCREATITIS [None]
